FAERS Safety Report 17142790 (Version 1)
Quarter: 2019Q4

REPORT INFORMATION
  Report Type: Spontaneous
  Country: US (occurrence: US)
  Receive Date: 20191119
  Receipt Date: 20191119
  Transmission Date: 20200122
  Serious: Yes (Hospitalization)
  Sender: FDA-Public Use
  Company Number: None

PATIENT
  Age: 28 Year
  Sex: Male
  Weight: 98.88 kg

DRUGS (1)
  1. LITHIUM. [Suspect]
     Active Substance: LITHIUM
     Indication: BIPOLAR I DISORDER
     Dates: start: 20190916, end: 20190916

REACTIONS (9)
  - Toxicity to various agents [None]
  - Intentional overdose [None]
  - Acute kidney injury [None]
  - Suicide attempt [None]
  - Treatment noncompliance [None]
  - Vomiting [None]
  - Haemodialysis [None]
  - Abdominal pain [None]
  - Nausea [None]

NARRATIVE: CASE EVENT DATE: 20190916
